FAERS Safety Report 6463575-7 (Version None)
Quarter: 2009Q4

REPORT INFORMATION
  Report Type: 
  Country: None (occurrence: None)
  Receive Date: 20091201
  Receipt Date: 20091123
  Transmission Date: 20100525
  Serious: Yes (Hospitalization, Other)
  Sender: FDA-Public Use
  Company Number: GB-BAYER-200940413GPV

PATIENT
  Sex: Female

DRUGS (3)
  1. CIPROXIN [Suspect]
     Indication: URINARY TRACT INFECTION
     Dosage: TOTAL DAILY DOSE: 500 MG  UNIT DOSE: 250 MG
     Route: 048
     Dates: start: 20091118
  2. CEPHALEXIN [Concomitant]
     Indication: URINARY TRACT INFECTION
     Dosage: LONG TEM
     Dates: end: 20091101
  3. WARFARIN SODIUM [Concomitant]
     Indication: VENOUS THROMBOSIS

REACTIONS (4)
  - GASTRIC HAEMORRHAGE [None]
  - INTERNATIONAL NORMALISED RATIO INCREASED [None]
  - RECTAL HAEMORRHAGE [None]
  - VOMITING [None]
